FAERS Safety Report 17817464 (Version 1)
Quarter: 2020Q2

REPORT INFORMATION
  Report Type: Spontaneous
  Country: US (occurrence: US)
  Receive Date: 20200522
  Receipt Date: 20200522
  Transmission Date: 20200714
  Serious: Yes (Other)
  Sender: FDA-Public Use
  Company Number: US-TEVA-2020-US-1237232

PATIENT
  Sex: Female

DRUGS (3)
  1. AUSTEDO [Suspect]
     Active Substance: DEUTETRABENAZINE
     Dosage: 30 MILLIGRAM DAILY; WEEK 4: 6 MG WITH A 9 MG TWICE A DAY (15 MG TWICE A DAY)
     Route: 048
  2. AUSTEDO [Suspect]
     Active Substance: DEUTETRABENAZINE
     Dosage: WEEKS 2 + 3: USE OTHER STRENGTHS
     Route: 048
  3. AUSTEDO [Suspect]
     Active Substance: DEUTETRABENAZINE
     Indication: PRODUCT USED FOR UNKNOWN INDICATION
     Dosage: 12 MILLIGRAM DAILY; WEEK 1: 6 MG TABLET TWICE A DAY
     Route: 048

REACTIONS (4)
  - Mouth swelling [Unknown]
  - Swollen tongue [Unknown]
  - Adverse event [Unknown]
  - Joint swelling [Unknown]
